FAERS Safety Report 8964224 (Version 2)
Quarter: 2013Q1

REPORT INFORMATION
  Report Type: Spontaneous
  Country: US (occurrence: US)
  Receive Date: 20121214
  Receipt Date: 20130122
  Transmission Date: 20140127
  Serious: Yes (Other)
  Sender: FDA-Public Use
  Company Number: US-ASTRAZENECA-2012SE91907

PATIENT
  Age: 57 Year
  Sex: Male
  Weight: 80.7 kg

DRUGS (10)
  1. SYMBICORT PMDI [Suspect]
     Indication: CHRONIC OBSTRUCTIVE PULMONARY DISEASE
     Dosage: 160 MCG/ 4.5 MCG, 2 PUFFS BID
     Route: 055
     Dates: start: 201107
  2. SYMBICORT PMDI [Suspect]
     Indication: EMPHYSEMA
     Dosage: 160 MCG/ 4.5 MCG, 2 PUFFS BID
     Route: 055
     Dates: start: 201107
  3. STRETTA [Concomitant]
     Indication: ATTENTION DEFICIT/HYPERACTIVITY DISORDER
     Route: 048
     Dates: start: 2002
  4. FOCLIN [Concomitant]
     Indication: ATTENTION DEFICIT/HYPERACTIVITY DISORDER
     Dosage: UNKNONW DOSE DAILY
     Route: 048
     Dates: start: 2002
  5. FLOMAX [Concomitant]
     Indication: PROSTATIC DISORDER
     Dates: start: 2010
  6. ZOLOFT [Concomitant]
     Route: 048
  7. PREDNISONE [Concomitant]
     Indication: PROPHYLAXIS
     Route: 048
  8. VENTOLIN [Concomitant]
     Dosage: UNKNONW DOSE DAILY
     Route: 055
     Dates: start: 2010
  9. ALBUTEROL NEBULIZER [Concomitant]
     Indication: DYSPNOEA
     Dosage: UNKNONW DOSE TWO TIMES A DAY
     Route: 055
     Dates: start: 201210
  10. SPIRIVA [Concomitant]
     Indication: DYSPNOEA
     Dosage: UNKNONW DOSE DAILY
     Route: 055
     Dates: start: 201210

REACTIONS (7)
  - Optic nerve infarction [Unknown]
  - Blindness [Unknown]
  - Blood pressure fluctuation [Unknown]
  - Dyspnoea [Unknown]
  - Chronic obstructive pulmonary disease [Unknown]
  - Hypertension [Unknown]
  - Off label use [Unknown]
